FAERS Safety Report 8430073-0 (Version None)
Quarter: 2012Q2

REPORT INFORMATION
  Report Type: 
  Country: None (occurrence: None)
  Receive Date: 20120612
  Receipt Date: 20120529
  Transmission Date: 20120825
  Serious: Yes (Hospitalization, Disabling)
  Sender: FDA-Public Use
  Company Number: AU-CELGENEUS-008-C5013-11072928

PATIENT
  Sex: Male
  Weight: 70 kg

DRUGS (15)
  1. MOVIPREP [Concomitant]
     Indication: CONSTIPATION
     Dosage: 1 SACHET
     Route: 048
     Dates: start: 20110729, end: 20110730
  2. AVENO [Concomitant]
     Indication: RASH
     Route: 061
     Dates: start: 20110704
  3. INTRAGAM P [Concomitant]
     Dosage: 1.1786 GRAM
     Route: 041
     Dates: start: 20110117
  4. CELESTONE M [Concomitant]
  5. ACETAMINOPHEN W/ CODEINE [Concomitant]
     Indication: PAIN
     Dosage: 2 TABLET
     Route: 048
     Dates: start: 20110727, end: 20110801
  6. OMEPRAZOLE [Concomitant]
     Dosage: 20 MILLIGRAM
     Route: 048
     Dates: start: 20110728, end: 20110728
  7. CELESTONE M [Concomitant]
     Indication: RASH
     Dosage: .6
     Route: 061
     Dates: start: 20110704
  8. THIAMINE HCL [Concomitant]
     Indication: NUTRITIONAL SUPPORT
     Dosage: 100 MILLIGRAM
     Route: 048
     Dates: start: 20110726
  9. COLOXYL + SENNA [Concomitant]
     Indication: CONSTIPATION
     Dosage: 2 TABLET
     Route: 048
     Dates: start: 20110727, end: 20110727
  10. VITAMIN B-12 [Concomitant]
     Indication: NUTRITIONAL SUPPORT
     Dosage: 1000 MICROGRAM
     Route: 030
     Dates: start: 20110727, end: 20110801
  11. LENALIDOMIDE [Suspect]
     Dosage: 2.5 MILLIGRAM
     Route: 048
     Dates: start: 20110509
  12. LENALIDOMIDE [Suspect]
     Dosage: 2.5 MILLIGRAM
     Route: 048
     Dates: start: 20110627, end: 20110714
  13. PANTOPRAZOLE [Concomitant]
     Dosage: 40 MILLIGRAM
     Route: 048
     Dates: start: 20110728
  14. DIPROSONE [Concomitant]
     Indication: RASH
     Route: 061
     Dates: start: 20110716
  15. SIGMACORT [Concomitant]
     Indication: RASH
     Route: 061
     Dates: start: 20110715

REACTIONS (31)
  - BLINDNESS [None]
  - PAROSMIA [None]
  - WEIGHT DECREASED [None]
  - OPTIC ATROPHY [None]
  - CENTRAL NERVOUS SYSTEM LESION [None]
  - GAIT DISTURBANCE [None]
  - HAND DEFORMITY [None]
  - COGWHEEL RIGIDITY [None]
  - SKIN EXFOLIATION [None]
  - ABNORMAL SENSATION IN EYE [None]
  - MOVEMENT DISORDER [None]
  - FOOD INTOLERANCE [None]
  - SJOGREN'S SYNDROME [None]
  - PERIPHERAL MOTOR NEUROPATHY [None]
  - TREMOR [None]
  - METABOLIC DISORDER [None]
  - EXTENSOR PLANTAR RESPONSE [None]
  - MACULOPATHY [None]
  - SCOTOMA [None]
  - ERYTHEMA [None]
  - IMPAIRED DRIVING ABILITY [None]
  - RASH [None]
  - CSF PROTEIN INCREASED [None]
  - OPTIC NEURITIS [None]
  - NEUROMYELITIS OPTICA [None]
  - OPTIC NEUROPATHY [None]
  - CEREBRAL MICROANGIOPATHY [None]
  - BALANCE DISORDER [None]
  - EXTRAPYRAMIDAL DISORDER [None]
  - HYPERREFLEXIA [None]
  - NEUROTOXICITY [None]
